FAERS Safety Report 9995143 (Version 1)
Quarter: 2014Q1

REPORT INFORMATION
  Report Type: Spontaneous
  Country: DE (occurrence: DE)
  Receive Date: 20140311
  Receipt Date: 20140311
  Transmission Date: 20141002
  Serious: Yes (Other)
  Sender: FDA-Public Use
  Company Number: DE-SA-2014SA030618

PATIENT
  Age: 61 Year
  Sex: Male

DRUGS (1)
  1. RENVELA [Suspect]
     Indication: PRODUCT USED FOR UNKNOWN INDICATION
     Route: 048
     Dates: start: 20140205, end: 20140215

REACTIONS (5)
  - Suicidal ideation [Recovering/Resolving]
  - Decreased appetite [Unknown]
  - Sleep disorder [Unknown]
  - Depression [Unknown]
  - Hypotension [Unknown]
